FAERS Safety Report 8787004 (Version 1)
Quarter: 2012Q4

REPORT INFORMATION
  Report Type: 
  Country: US (occurrence: US)
  Receive Date: 20120914
  Receipt Date: 20120914
  Transmission Date: 20130627
  Serious: No
  Sender: FDA-Public Use
  Company Number: US-VERTEX PHARMACEUTICAL INC.-AE-2012-011051

PATIENT
  Sex: Male
  Weight: 101.82 kg

DRUGS (3)
  1. INCIVEK [Suspect]
     Indication: HEPATITIS C
     Route: 048
     Dates: start: 20110720, end: 201110
  2. RIBAVIRIN [Concomitant]
     Indication: HEPATITIS C
     Dates: start: 20110720, end: 201207
  3. PEGASYS [Concomitant]
     Indication: HEPATITIS C
     Dates: start: 20110720, end: 201207

REACTIONS (4)
  - Weight increased [Recovered/Resolved]
  - Therapeutic response unexpected [Not Recovered/Not Resolved]
  - Fatigue [Not Recovered/Not Resolved]
  - Drug ineffective [Unknown]
